FAERS Safety Report 8115582-6 (Version None)
Quarter: 2012Q1

REPORT INFORMATION
  Report Type: 
  Country: None (occurrence: None)
  Receive Date: 20120124
  Receipt Date: 20120117
  Transmission Date: 20120608
  Serious: Yes (Other)
  Sender: FDA-Public Use
  Company Number: 2012030812

PATIENT
  Age: 63 Year
  Sex: Female
  Weight: 98.8842 kg

DRUGS (36)
  1. NEXIUM [Concomitant]
  2. CRESTOR [Concomitant]
  3. ULTRAVATE (ULOBETASOL PROPIONATE) [Concomitant]
  4. HIZENTRA [Suspect]
     Dosage: (4 GM (20 ML) ON FOUR SITES OVER ONE HOUR SUBCUTANEOUS)
     Route: 058
  5. HYDROCODONE APAP (PROCET) [Concomitant]
  6. HIZENTRA [Suspect]
     Dosage: (1 G (5ML) ON FOUR SITES OVER ON HOUR SUBCUTANEOUS)
     Route: 058
  7. HIZENTRA [Suspect]
     Dosage: (4 GM (20 ML) ON FOUR SITES OVER ONE HOUR SUBCUTANEOUS)
     Route: 058
  8. HIZENTRA [Suspect]
     Dosage: (4 GM (20 ML) ON FOUR SITES OVER ONE HOUR SUBCUTANEOUS)
     Route: 058
  9. HIZENTRA [Suspect]
     Dosage: (4 GM (20 ML) ON FOUR SITES OVER ONE HOUR SUBCUTANEOUS)
     Route: 058
  10. NITROGLYCERIN [Concomitant]
  11. PREDNISONE TAB [Concomitant]
  12. OXYGEN [Concomitant]
  13. PROPRANOLOL [Concomitant]
  14. HIZENTRA [Suspect]
     Dosage: (1 G (5ML) ON FOUR SITES OVER ONE HOUR SUBCUTANEOUS)
     Route: 058
  15. HIZENTRA [Suspect]
     Dosage: (1 G (5ML) ON FOUR SITES OVER ONE HOUR SUBCUTANEOUS)
     Route: 058
  16. HIZENTRA [Suspect]
     Dosage: (4 GM (20 ML) ON FOUR SITES OVER ONE HOUR SUBCUTANEOUS)
     Route: 058
  17. PROVENTIL [Concomitant]
  18. VALIUM [Concomitant]
  19. LEVOTHYROXINE SODIUM [Concomitant]
  20. FISH OIL [Concomitant]
  21. BACLOFEN [Concomitant]
  22. HIZENTRA [Suspect]
     Dosage: (4 GM (20 ML) ON FOUR SITES OVER ONE HOUR SUBCUTANEOUS)
     Route: 058
  23. COUMADIN [Concomitant]
  24. MULTI-VITAMIN [Concomitant]
  25. HIZENTRA [Suspect]
     Dosage: (1 G (5ML) ON FOUR SITES OVER ONE HOUR SUBCUTANEOUS)
     Route: 058
  26. HIZENTRA [Suspect]
     Dosage: (4 GM (20 ML) ON FOUR SITES OVER ONE HOUR SUBCUTANEOUS)
     Route: 058
  27. CALCITONIN SALMON [Concomitant]
  28. DOVONEX [Concomitant]
  29. HIZENTRA [Suspect]
     Indication: IMMUNODEFICIENCY COMMON VARIABLE
     Dosage: (9 G 1X/WEEK, 45 ML ON FOUR SITES OVER ONE HOUR SUBCUTANEOUS)
     Route: 058
     Dates: start: 20110701
  30. FENTANYL [Concomitant]
  31. PULMICORT [Concomitant]
  32. HIZENTRA [Suspect]
     Dosage: (1 G (5ML) ON FOUR SITES OVER ONE HOUR)
  33. HIZENTRA [Suspect]
     Dates: start: 20110421
  34. POTASSIUM CL ER (POTASSIUM CHLORIDE) [Concomitant]
  35. CALCIUM WITH VITAMIN D [Concomitant]
  36. VITAMIN E [Concomitant]

REACTIONS (5)
  - RENAL DISORDER [None]
  - PAIN IN EXTREMITY [None]
  - URINARY TRACT INFECTION [None]
  - ORAL PAIN [None]
  - RESPIRATORY TRACT INFECTION [None]
